FAERS Safety Report 19706804 (Version 2)
Quarter: 2021Q3

REPORT INFORMATION
  Report Type: Spontaneous
  Country: US (occurrence: US)
  Receive Date: 20210817
  Receipt Date: 20210908
  Transmission Date: 20211014
  Serious: Yes (Hospitalization, Other)
  Sender: FDA-Public Use
  Company Number: US-PFIZER INC-202101014063

PATIENT
  Age: 54 Year
  Sex: Female

DRUGS (7)
  1. DAPTOMYCIN. [Interacting]
     Active Substance: DAPTOMYCIN
     Indication: SKIN INFECTION
     Dosage: 750 MG, DAILY
  2. LEFLUNOMIDE. [Interacting]
     Active Substance: LEFLUNOMIDE
     Indication: PSORIATIC ARTHROPATHY
     Dosage: UNK
  3. DAPTOMYCIN. [Interacting]
     Active Substance: DAPTOMYCIN
     Indication: ENTEROCOCCAL INFECTION
  4. DAPTOMYCIN. [Interacting]
     Active Substance: DAPTOMYCIN
     Indication: OSTEOMYELITIS
  5. ATORVASTATIN CALCIUM. [Suspect]
     Active Substance: ATORVASTATIN CALCIUM
     Dosage: 80 MG, DAILY
  6. DAPTOMYCIN. [Interacting]
     Active Substance: DAPTOMYCIN
     Indication: SOFT TISSUE INFECTION
  7. DAPTOMYCIN. [Interacting]
     Active Substance: DAPTOMYCIN
     Indication: STAPHYLOCOCCAL INFECTION

REACTIONS (3)
  - Drug interaction [Recovering/Resolving]
  - Rhabdomyolysis [Recovering/Resolving]
  - Off label use [Unknown]
